APPROVED DRUG PRODUCT: NORETHINDRONE ACETATE AND ETHINYL ESTRADIOL
Active Ingredient: ETHINYL ESTRADIOL; NORETHINDRONE ACETATE
Strength: 0.02MG;1MG
Dosage Form/Route: TABLET;ORAL-21
Application: A206969 | Product #001 | TE Code: AB
Applicant: GLENMARK PHARMACEUTICALS LTD
Approved: Jan 20, 2016 | RLD: No | RS: No | Type: RX